FAERS Safety Report 17230172 (Version 3)
Quarter: 2020Q4

REPORT INFORMATION
  Report Type: Spontaneous
  Country: JP (occurrence: JP)
  Receive Date: 20200103
  Receipt Date: 20201223
  Transmission Date: 20210113
  Serious: Yes (Other)
  Sender: FDA-Public Use
  Company Number: JP-JNJFOC-20191245586

PATIENT
  Sex: Male

DRUGS (14)
  1. AMITIZA [Concomitant]
     Active Substance: LUBIPROSTONE
     Route: 048
  2. LEVOTOMIN [LEVOMEPROMAZINE MALEATE] [Suspect]
     Active Substance: LEVOMEPROMAZINE
     Indication: PRODUCT USED FOR UNKNOWN INDICATION
     Route: 048
  3. PIMURO [Concomitant]
     Dosage: DOSE UNKNOWN IN THE EVENING
     Route: 048
  4. XEPLION [Suspect]
     Active Substance: PALIPERIDONE PALMITATE
     Indication: SCHIZOPHRENIA
     Route: 030
     Dates: start: 201911
  5. XEPLION [Suspect]
     Active Substance: PALIPERIDONE PALMITATE
     Route: 030
     Dates: start: 2020
  6. LULLAN [Concomitant]
     Active Substance: PEROSPIRONE HYDROCHLORIDE
     Route: 048
  7. XEPLION [Suspect]
     Active Substance: PALIPERIDONE PALMITATE
     Route: 030
     Dates: start: 2020
  8. LEVOTOMIN [LEVOMEPROMAZINE MALEATE] [Suspect]
     Active Substance: LEVOMEPROMAZINE
     Route: 048
  9. ZOLPIDEM TARTRATE OD [Concomitant]
     Active Substance: ZOLPIDEM TARTRATE
     Route: 048
  10. XEPLION [Suspect]
     Active Substance: PALIPERIDONE PALMITATE
     Route: 030
     Dates: start: 2019, end: 2019
  11. XEPLION [Suspect]
     Active Substance: PALIPERIDONE PALMITATE
     Route: 030
     Dates: start: 2019
  12. XEPLION [Suspect]
     Active Substance: PALIPERIDONE PALMITATE
     Route: 030
     Dates: start: 2019, end: 2019
  13. BROTIZOLAM OD [Concomitant]
     Active Substance: BROTIZOLAM
     Route: 048
  14. GLACTIV [Concomitant]
     Active Substance: SITAGLIPTIN
     Indication: DIABETES MELLITUS
     Route: 048

REACTIONS (16)
  - Inappropriate affect [Unknown]
  - Inappropriate schedule of product administration [Unknown]
  - Locked-in syndrome [Unknown]
  - Malaise [Unknown]
  - Persecutory delusion [Unknown]
  - Blood glucose increased [Unknown]
  - Delusion [Unknown]
  - Off label use [Unknown]
  - Hallucination, auditory [Unknown]
  - Insomnia [Unknown]
  - Sleep deficit [Unknown]
  - Suicide attempt [Unknown]
  - Constipation [Unknown]
  - Patient elopement [Unknown]
  - Hallucination, visual [Unknown]
  - Abnormal behaviour [Unknown]

NARRATIVE: CASE EVENT DATE: 2020
